FAERS Safety Report 12408380 (Version 1)
Quarter: 2016Q2

REPORT INFORMATION
  Report Type: Report from Study
  Country: DE (occurrence: DE)
  Receive Date: 20160526
  Receipt Date: 20160526
  Transmission Date: 20160815
  Serious: Yes (Other)
  Sender: FDA-Public Use
  Company Number: DE-TEVA-660355GER

PATIENT
  Age: 50 Year
  Sex: Female

DRUGS (2)
  1. TRISENOX [Suspect]
     Active Substance: ARSENIC TRIOXIDE
     Indication: ACUTE PROMYELOCYTIC LEUKAEMIA
     Dosage: UNKNOWN DOSE
  2. ATRA (ALL-TRANS-RETINOIC ACID) [Suspect]
     Active Substance: TRETINOIN
     Indication: ACUTE PROMYELOCYTIC LEUKAEMIA
     Dosage: UNKNOWN DOSE

REACTIONS (6)
  - Sepsis [Unknown]
  - Product use issue [Unknown]
  - Cholecystitis [Unknown]
  - Cardiac disorder [Unknown]
  - White blood cell count increased [Unknown]
  - Off label use [Unknown]
